FAERS Safety Report 7626732 (Version 2)
Quarter: 2016Q3

REPORT INFORMATION
  Report Type: Report from Study
  Country: US (occurrence: US)
  Receive Date: 20101013
  Receipt Date: 20160921
  Transmission Date: 20161109
  Serious: No
  Sender: FDA-Public Use
  Company Number: US-ASTRAZENECA-2010SE20949

PATIENT
  Sex: Female

DRUGS (1)
  1. SYMBICORT [Suspect]
     Active Substance: BUDESONIDE\FORMOTEROL FUMARATE DIHYDRATE
     Dosage: 160/4.5MCG, TWO PUFFS TWICE DAILY.
     Route: 055

REACTIONS (5)
  - Flatulence [Unknown]
  - Drug dose omission [Unknown]
  - Dyspnoea [Unknown]
  - Food poisoning [Unknown]
  - Abdominal distension [Unknown]
